FAERS Safety Report 20499428 (Version 1)
Quarter: 2022Q1

REPORT INFORMATION
  Report Type: Spontaneous
  Country: GR (occurrence: GR)
  Receive Date: 20220222
  Receipt Date: 20220222
  Transmission Date: 20220423
  Serious: Yes (Disabling)
  Sender: FDA-Public Use
  Company Number: GR-CELLTRION INC.-2021GR018940

PATIENT

DRUGS (5)
  1. INFLIXIMAB [Suspect]
     Active Substance: INFLIXIMAB
     Indication: Crohn^s disease
     Dosage: 4X100MG/8 WEEKS (400 MG)
     Route: 065
     Dates: start: 20201127
  2. INFLIXIMAB [Suspect]
     Active Substance: INFLIXIMAB
     Dosage: UNK
     Dates: start: 20210607
  3. INFLIXIMAB [Suspect]
     Active Substance: INFLIXIMAB
     Dosage: 100MG/VIAL 4X100MG
     Route: 042
     Dates: start: 202011, end: 202011
  4. INFLIXIMAB [Suspect]
     Active Substance: INFLIXIMAB
     Dosage: 100MG/VIAL 4X100MG
     Route: 042
     Dates: start: 202101, end: 202101
  5. INFLIXIMAB [Suspect]
     Active Substance: INFLIXIMAB
     Dosage: 4X100MG/ 8 WEEKS
     Route: 042
     Dates: start: 20201127, end: 20210607

REACTIONS (5)
  - Impaired work ability [Unknown]
  - Dizziness [Recovered/Resolved]
  - Balance disorder [Recovered/Resolved]
  - Vertigo [Recovered/Resolved]
  - Overdose [Unknown]

NARRATIVE: CASE EVENT DATE: 20201101
